FAERS Safety Report 9354478 (Version 1)
Quarter: 2013Q2

REPORT INFORMATION
  Report Type: Spontaneous
  Country: BR (occurrence: BR)
  Receive Date: 20130618
  Receipt Date: 20130618
  Transmission Date: 20140414
  Serious: Yes (Other)
  Sender: FDA-Public Use
  Company Number: BR-PFIZER INC-2013179456

PATIENT
  Age: 77 Year
  Sex: Male

DRUGS (1)
  1. LIPITOR [Suspect]
     Indication: BLOOD CHOLESTEROL ABNORMAL
     Dosage: 10 MG, 1X/DAY (1 TABLET, ONCE A DAY)
     Route: 048
     Dates: start: 201305

REACTIONS (3)
  - Gastrointestinal bacterial infection [Unknown]
  - Gastrointestinal disorder [Unknown]
  - Asthenia [Unknown]
